FAERS Safety Report 5031356-7 (Version None)
Quarter: 2006Q2

REPORT INFORMATION
  Report Type: 
  Country: None (occurrence: None)
  Receive Date: 20060615
  Receipt Date: 20060612
  Transmission Date: 20061013
  Serious: Yes (Other)
  Sender: FDA-Public Use
  Company Number: 200610168BNE

PATIENT
  Age: 57 Year
  Sex: Male

DRUGS (2)
  1. LEVITRA [Suspect]
     Dates: start: 20060117
  2. METFORMIN [Concomitant]

REACTIONS (2)
  - DIPLOPIA [None]
  - EYE DISORDER [None]
